FAERS Safety Report 5862214-3 (Version None)
Quarter: 2008Q3

REPORT INFORMATION
  Report Type: 
  Country: None (occurrence: None)
  Receive Date: 20080826
  Receipt Date: 20080812
  Transmission Date: 20090109
  Serious: Yes (Death, Hospitalization)
  Sender: FDA-Public Use
  Company Number: 2008001555

PATIENT
  Age: 63 Year
  Sex: Female

DRUGS (9)
  1. ERLOTINIB (ERLOTINIB) (TABLET) (ERLOTINIB) [Suspect]
     Indication: LUNG ADENOCARCINOMA
     Dosage: (150 MG, QD), ORAL
     Route: 048
     Dates: start: 20080421, end: 20080617
  2. URSO 250 [Concomitant]
  3. FAMOTIDINE [Concomitant]
  4. PREDONINE (PREDNISOLONE) [Concomitant]
  5. DIOVAN [Concomitant]
  6. AMLODIPINE BESYLATE [Concomitant]
  7. PURSENNID (SENNA LEAF) [Concomitant]
  8. OXYCONTIN [Concomitant]
  9. NEOPHAGEN (GLYCYRRHIZINATE POTASSIUM) [Concomitant]

REACTIONS (7)
  - COLLAPSE OF LUNG [None]
  - DEVICE INEFFECTIVE [None]
  - DRUG INEFFECTIVE [None]
  - HAEMOTHORAX [None]
  - HYPERTENSION [None]
  - PNEUMOTHORAX [None]
  - RESPIRATORY FAILURE [None]
